FAERS Safety Report 21354201 (Version 2)
Quarter: 2022Q4

REPORT INFORMATION
  Report Type: Spontaneous
  Country: BG (occurrence: BG)
  Receive Date: 20220920
  Receipt Date: 20221219
  Transmission Date: 20230113
  Serious: Yes (Other)
  Sender: FDA-Public Use
  Company Number: BG-NOVARTISPH-NVSC2022BG209975

PATIENT
  Age: 65 Year
  Sex: Male

DRUGS (4)
  1. ZOLEDRONIC ACID [Suspect]
     Active Substance: ZOLEDRONIC ACID
     Indication: Prostate cancer
     Dosage: 4 MG (EVERY 28 DAYS)
     Route: 042
  2. ELIGARD [Suspect]
     Active Substance: LEUPROLIDE ACETATE
     Indication: Prostate cancer
     Dosage: 45 MG (Q 6 MONTH)
     Route: 065
     Dates: start: 201808
  3. DENOSUMAB [Suspect]
     Active Substance: DENOSUMAB
     Indication: Prostate cancer
     Dosage: 120 MG, QMO
     Route: 058
  4. XTANDI [Suspect]
     Active Substance: ENZALUTAMIDE
     Indication: Prostate cancer
     Dosage: 160 MG FOR EVERY 28 DAYS
     Route: 065
     Dates: start: 202109

REACTIONS (15)
  - Prostatic specific antigen increased [Unknown]
  - Diabetes mellitus inadequate control [Unknown]
  - Osteonecrosis of jaw [Unknown]
  - Prostate cancer [Unknown]
  - Pleural effusion [Unknown]
  - Cardiac failure chronic [Recovering/Resolving]
  - Insomnia [Unknown]
  - Musculoskeletal stiffness [Unknown]
  - Cancer pain [Unknown]
  - Arthralgia [Unknown]
  - Headache [Unknown]
  - Asthenia [Unknown]
  - Blood pressure fluctuation [Recovering/Resolving]
  - Blood glucose increased [Unknown]
  - Off label use [Recovered/Resolved]

NARRATIVE: CASE EVENT DATE: 20181201
